FAERS Safety Report 4280310-1 (Version None)
Quarter: 2004Q1

REPORT INFORMATION
  Report Type: 
  Country: None (occurrence: None)
  Receive Date: 20040126
  Receipt Date: 20040109
  Transmission Date: 20041129
  Serious: Yes (Hospitalization)
  Sender: FDA-Public Use
  Company Number: 10046918-C578559-1

PATIENT
  Sex: Male
  Weight: 8.4 kg

DRUGS (4)
  1. 2B1324-0.9% SODIUM CHLORIDE INJECTION, USP [Suspect]
     Indication: INTRAVENOUS CATHETER MANAGEMENT
     Dosage: INTRAVENOUS
     Route: 042
  2. HEPARIN [Concomitant]
  3. UNSPECIFIED COMPONENT [Concomitant]
  4. 5 ML SYRINGE [Concomitant]

REACTIONS (2)
  - ENTEROBACTER INFECTION [None]
  - SEPSIS [None]
